FAERS Safety Report 9407632 (Version 1)
Quarter: 2013Q3

REPORT INFORMATION
  Report Type: Spontaneous
  Country: IT (occurrence: FR)
  Receive Date: 20130718
  Receipt Date: 20130718
  Transmission Date: 20140515
  Serious: Yes (Hospitalization)
  Sender: FDA-Public Use
  Company Number: FR-FRI-1000046762

PATIENT
  Age: 82 Year
  Sex: Male

DRUGS (8)
  1. NEBIVOLOL [Suspect]
     Dosage: 0.25 MG
     Route: 048
     Dates: end: 20130408
  2. ALTEISDUO [Suspect]
     Indication: HYPERTENSION
     Dosage: 20MG/25MG
     Route: 048
     Dates: end: 20130517
  3. HEMIGOXINE [Suspect]
     Dosage: 0.125 MG
     Route: 048
     Dates: end: 20130403
  4. KALEORID [Suspect]
     Indication: HYPOKALAEMIA
     Dosage: 1000 MG
     Route: 048
     Dates: end: 20130517
  5. METFORMINE [Suspect]
     Indication: INSULIN-REQUIRING TYPE 2 DIABETES MELLITUS
     Dosage: 1700 MG
     Route: 048
     Dates: end: 20130523
  6. TANAKAN [Suspect]
     Indication: COGNITIVE DISORDER
     Dosage: 80 MG
     Route: 048
     Dates: end: 20130417
  7. CYCLO 3 FORT [Suspect]
     Route: 048
     Dates: end: 20130417
  8. LANTUS [Suspect]
     Indication: INSULIN-REQUIRING TYPE 2 DIABETES MELLITUS
     Route: 058
     Dates: end: 20130408

REACTIONS (5)
  - Bradycardia [Unknown]
  - Muscular weakness [Unknown]
  - Cardioactive drug level increased [Unknown]
  - Renal failure [Unknown]
  - Malnutrition [Unknown]
